FAERS Safety Report 9609029 (Version 1)
Quarter: 2013Q4

REPORT INFORMATION
  Report Type: Spontaneous
  Country: US (occurrence: US)
  Receive Date: 20131009
  Receipt Date: 20131009
  Transmission Date: 20140711
  Serious: No
  Sender: FDA-Public Use
  Company Number: US-PURDUE-USA-2012-0094453

PATIENT
  Age: 38 Year
  Sex: Female

DRUGS (5)
  1. BUTRANS [Suspect]
     Indication: BACK PAIN
     Dosage: 10 MCG, 1/WEEK
     Route: 062
     Dates: start: 20120912
  2. LORTAB                             /00607101/ [Concomitant]
     Indication: BREAKTHROUGH PAIN
     Dosage: 1 TABLET (7.5/500MG), BID
     Route: 048
     Dates: start: 201205
  3. ROBAXIN [Concomitant]
     Indication: MUSCLE RELAXANT THERAPY
     Dosage: 750 MG, TID
     Route: 048
     Dates: start: 201205
  4. CYMBALTA [Concomitant]
     Indication: NEURALGIA
     Dosage: 60 MG, PM
     Route: 048
     Dates: start: 201205
  5. LISINOPRIL [Concomitant]
     Indication: BLOOD PRESSURE
     Dosage: 10 MG, DAILY
     Route: 048
     Dates: start: 2002

REACTIONS (2)
  - Pruritus [Recovered/Resolved]
  - Product colour issue [Unknown]
